FAERS Safety Report 21063648 (Version 2)
Quarter: 2022Q3

REPORT INFORMATION
  Report Type: Spontaneous
  Country: SK (occurrence: None)
  Receive Date: 20220711
  Receipt Date: 20220831
  Transmission Date: 20221026
  Serious: Yes (Hospitalization)
  Sender: FDA-Public Use
  Company Number: SK-ROCHE-3135931

PATIENT
  Age: 92 Year
  Sex: Female

DRUGS (7)
  1. HERCEPTIN [Suspect]
     Active Substance: TRASTUZUMAB
     Indication: Breast cancer
     Route: 058
     Dates: start: 20220622
  2. CLOPIDOGREL [Concomitant]
     Active Substance: CLOPIDOGREL BISULFATE
  3. CALTRATE [Concomitant]
     Active Substance: CALCIUM CARBONATE
  4. DIETARY SUPPLEMENT\HERBALS\MILK THISTLE [Concomitant]
     Active Substance: DIETARY SUPPLEMENT\HERBALS\MILK THISTLE
  5. ATORVASTATIN [Concomitant]
     Active Substance: ATORVASTATIN
  6. XGEVA [Concomitant]
     Active Substance: DENOSUMAB
  7. LETROZOLE [Concomitant]
     Active Substance: LETROZOLE

REACTIONS (1)
  - Gastric ulcer haemorrhage [Unknown]
